FAERS Safety Report 6321695-1 (Version None)
Quarter: 2009Q3

REPORT INFORMATION
  Report Type: 
  Country: None (occurrence: None)
  Receive Date: 20090821
  Receipt Date: 20090821
  Transmission Date: 20100115
  Serious: Yes (Life-Threatening)
  Sender: FDA-Public Use
  Company Number: None

PATIENT
  Age: 50 Year
  Sex: Female
  Weight: 58.0604 kg

DRUGS (4)
  1. INVEGA [Suspect]
     Dosage: 1 DAILY
     Dates: start: 20090702
  2. INVEGA [Suspect]
     Dosage: 1 DAILY
     Dates: start: 20090703
  3. ADOVAN [Concomitant]
  4. VISTORAL [Concomitant]

REACTIONS (3)
  - INSOMNIA [None]
  - MUSCLE TWITCHING [None]
  - PALPITATIONS [None]
